FAERS Safety Report 14038101 (Version 3)
Quarter: 2019Q2

REPORT INFORMATION
  Report Type: Spontaneous
  Country: AT (occurrence: AT)
  Receive Date: 20171004
  Receipt Date: 20190401
  Transmission Date: 20190711
  Serious: Yes (Life-Threatening, Hospitalization)
  Sender: FDA-Public Use
  Company Number: AT-ELI_LILLY_AND_COMPANY-AT201709011086

PATIENT
  Age: 53 Year
  Sex: Female
  Weight: 113 kg

DRUGS (18)
  1. FRAGMIN [Concomitant]
     Active Substance: DALTEPARIN SODIUM
     Dosage: 15000 IU, UNKNOWN
     Route: 065
     Dates: start: 20150430, end: 20150430
  2. FRAGMIN [Concomitant]
     Active Substance: DALTEPARIN SODIUM
     Dosage: 10000 IU, UNKNOWN
     Route: 065
     Dates: start: 20150501, end: 20150501
  3. ANTIFLAT [Concomitant]
     Indication: PRODUCT USED FOR UNKNOWN INDICATION
     Dosage: UNK UNK, UNKNOWN
     Route: 065
     Dates: start: 20140428, end: 20140428
  4. MEXALEN [Concomitant]
     Active Substance: ACETAMINOPHEN
     Indication: PRODUCT USED FOR UNKNOWN INDICATION
     Dosage: 500 MG, UNKNOWN
     Route: 065
     Dates: start: 20140504, end: 20140504
  5. MEXALEN [Concomitant]
     Active Substance: ACETAMINOPHEN
     Dosage: 500 MG, UNKNOWN
     Route: 065
     Dates: start: 20140428, end: 20140428
  6. LEPONEX [Suspect]
     Active Substance: CLOZAPINE
     Dosage: 225 MG, UNKNOWN
     Route: 065
     Dates: start: 20150427, end: 20150427
  7. LEPONEX [Suspect]
     Active Substance: CLOZAPINE
     Dosage: 250 MG, UNKNOWN
     Route: 065
     Dates: start: 20170428, end: 20170429
  8. EUTHYROX [Concomitant]
     Active Substance: LEVOTHYROXINE SODIUM
     Indication: PRODUCT USED FOR UNKNOWN INDICATION
     Dosage: 50 UG, UNKNOWN
     Route: 065
  9. LEPONEX [Suspect]
     Active Substance: CLOZAPINE
     Dosage: 200 MG, UNKNOWN
     Route: 065
     Dates: start: 20150424, end: 20150426
  10. LEPONEX [Suspect]
     Active Substance: CLOZAPINE
     Dosage: 275 MG, UNKNOWN
     Route: 065
     Dates: start: 20170430, end: 20170430
  11. FRAGMIN [Concomitant]
     Active Substance: DALTEPARIN SODIUM
     Dosage: 20000 IU, UNKNOWN
     Route: 065
     Dates: start: 20150502
  12. LEPONEX [Suspect]
     Active Substance: CLOZAPINE
     Indication: PRODUCT USED FOR UNKNOWN INDICATION
     Dosage: 100 MG, UNKNOWN
     Route: 065
     Dates: start: 2014, end: 20150423
  13. FRAGMIN [Concomitant]
     Active Substance: DALTEPARIN SODIUM
     Indication: PRODUCT USED FOR UNKNOWN INDICATION
     Dosage: 5000 IU, UNKNOWN
     Route: 065
     Dates: start: 20150429, end: 20150429
  14. CYMBALTA [Suspect]
     Active Substance: DULOXETINE HYDROCHLORIDE
     Indication: PRODUCT USED FOR UNKNOWN INDICATION
     Dosage: 60 MG, UNKNOWN
     Route: 065
     Dates: start: 2014, end: 20150427
  15. LEPONEX [Suspect]
     Active Substance: CLOZAPINE
     Dosage: 300 MG, UNKNOWN
     Route: 065
     Dates: start: 20150501
  16. MOLAXOLE [Concomitant]
     Active Substance: POLYETHYLENE GLYCOL 3350\POTASSIUM CHLORIDE\SODIUM BICARBONATE\SODIUM CHLORIDE
     Indication: PRODUCT USED FOR UNKNOWN INDICATION
     Dosage: UNK, UNKNOWN
     Route: 065
     Dates: start: 20150428, end: 20150428
  17. ANTIFLAT [Concomitant]
     Dosage: 500 MG, UNKNOWN
     Route: 065
     Dates: start: 20160504, end: 20160504
  18. INDERAL [Concomitant]
     Active Substance: PROPRANOLOL HYDROCHLORIDE
     Indication: PRODUCT USED FOR UNKNOWN INDICATION
     Dosage: 10 MG, UNKNOWN
     Route: 065
     Dates: start: 20150511, end: 20150511

REACTIONS (4)
  - Schizophrenia [Unknown]
  - Antipsychotic drug level below therapeutic [Unknown]
  - Pulmonary embolism [Unknown]
  - Electroencephalogram abnormal [Unknown]

NARRATIVE: CASE EVENT DATE: 20150427
